FAERS Safety Report 5274501-0 (Version None)
Quarter: 2007Q1

REPORT INFORMATION
  Report Type: 
  Country: None (occurrence: None)
  Receive Date: 20070323
  Receipt Date: 20061206
  Transmission Date: 20070707
  Serious: Yes (Death, Other)
  Sender: FDA-Public Use
  Company Number: US-PFIZER INC-2007020562

PATIENT

DRUGS (2)
  1. SUTENT [Suspect]
  2. SUTENT [Suspect]

REACTIONS (3)
  - CONVULSION [None]
  - DEATH [None]
  - METABOLIC ACIDOSIS [None]
